FAERS Safety Report 10690903 (Version 1)
Quarter: 2015Q1

REPORT INFORMATION
  Report Type: Spontaneous
  Country: US (occurrence: US)
  Receive Date: 20150105
  Receipt Date: 20150105
  Transmission Date: 20150720
  Serious: No
  Sender: FDA-Public Use
  Company Number: US-GLAXOSMITHKLINE-US2014030162

PATIENT
  Sex: Female

DRUGS (1)
  1. NICORETTE [Suspect]
     Active Substance: NICOTINE
     Indication: SMOKING CESSATION THERAPY
     Dosage: 2 MG, UNK
     Route: 002
     Dates: start: 201411

REACTIONS (3)
  - Tongue eruption [Recovered/Resolved]
  - Oral mucosal erythema [Recovered/Resolved]
  - Tongue dry [Recovered/Resolved]

NARRATIVE: CASE EVENT DATE: 201411
